FAERS Safety Report 7751917-1 (Version None)
Quarter: 2011Q3

REPORT INFORMATION
  Report Type: 
  Country: None (occurrence: None)
  Receive Date: 20110914
  Receipt Date: 20110914
  Transmission Date: 20111222
  Serious: Yes (Life-Threatening, Hospitalization, Other)
  Sender: FDA-Public Use
  Company Number: None

PATIENT
  Age: 47 Year
  Sex: Male

DRUGS (1)
  1. PHENYTOIN [Suspect]
     Indication: EPILEPSY
     Dosage: TAKE 6 CAPSULES EVERY EVENING
     Dates: start: 20110622

REACTIONS (3)
  - PRODUCT SUBSTITUTION ISSUE [None]
  - DYSPHAGIA [None]
  - GRAND MAL CONVULSION [None]
